FAERS Safety Report 21956146 (Version 1)
Quarter: 2023Q1

REPORT INFORMATION
  Report Type: Spontaneous
  Country: FR (occurrence: FR)
  Receive Date: 20230206
  Receipt Date: 20230206
  Transmission Date: 20230418
  Serious: Yes (Hospitalization, Other)
  Sender: FDA-Public Use
  Company Number: None

PATIENT
  Age: 38 Year
  Sex: Male
  Weight: 73 kg

DRUGS (9)
  1. TRETINOIN [Suspect]
     Active Substance: TRETINOIN
     Indication: Acute myeloid leukaemia
     Route: 048
     Dates: start: 20221209, end: 20221230
  2. TRETINOIN [Suspect]
     Active Substance: TRETINOIN
     Indication: Acute myeloid leukaemia
     Route: 048
     Dates: start: 20230105, end: 20230108
  3. HYDROXYUREA [Suspect]
     Active Substance: HYDROXYUREA
     Indication: Hyperleukocytosis
     Route: 048
     Dates: start: 20221220, end: 20221228
  4. TRISENOX [Suspect]
     Active Substance: ARSENIC TRIOXIDE
     Indication: Acute myeloid leukaemia
     Dosage: 22 MG/DAY FOR 5 DAYS THEN 18.4 MG TWICE/WEEK
     Route: 042
     Dates: start: 20221213, end: 20221230
  5. VALACYCLOVIR HYDROCHLORIDE [Suspect]
     Active Substance: VALACYCLOVIR HYDROCHLORIDE
     Dates: start: 20221209
  6. POSACONAZOLE [Suspect]
     Active Substance: POSACONAZOLE
     Dates: start: 20221215
  7. LANSOPRAZOLE [Suspect]
     Active Substance: LANSOPRAZOLE
     Dates: start: 20221217
  8. DEXAMETHASONE [Suspect]
     Active Substance: DEXAMETHASONE
     Dates: start: 20221219
  9. FUROSEMIDE [Suspect]
     Active Substance: FUROSEMIDE
     Indication: Weight increased
     Dates: start: 20221217, end: 20221226

REACTIONS (5)
  - Extremity necrosis [Recovered/Resolved]
  - Hyperleukocytosis [Unknown]
  - Jugular vein thrombosis [Recovered/Resolved]
  - Weight increased [Unknown]
  - Product use in unapproved indication [Recovered/Resolved]

NARRATIVE: CASE EVENT DATE: 20221220
